FAERS Safety Report 6447832-6 (Version None)
Quarter: 2009Q4

REPORT INFORMATION
  Report Type: 
  Country: None (occurrence: None)
  Receive Date: 20091120
  Receipt Date: 20091119
  Transmission Date: 20100525
  Serious: Yes (Hospitalization, Disabling, Other)
  Sender: FDA-Public Use
  Company Number: FR-JNJFOC-20090905566

PATIENT
  Age: 51 Year
  Sex: Female
  Weight: 65 kg

DRUGS (9)
  1. REMICADE [Suspect]
     Dosage: 9TH INFUSION
     Route: 042
     Dates: start: 20080723, end: 20090716
  2. REMICADE [Suspect]
     Dosage: 8TH INFUSION
     Route: 042
     Dates: start: 20080723, end: 20090716
  3. REMICADE [Suspect]
     Dosage: 7TH INFUSION
     Route: 042
     Dates: start: 20080723, end: 20090716
  4. REMICADE [Suspect]
     Dosage: 6TH INFUSION
     Route: 042
     Dates: start: 20080723, end: 20090716
  5. REMICADE [Suspect]
     Dosage: 5TH INFUSION
     Route: 042
     Dates: start: 20080723, end: 20090716
  6. REMICADE [Suspect]
     Dosage: 4TH INFUSION
     Route: 042
     Dates: start: 20080723, end: 20090716
  7. REMICADE [Suspect]
     Dosage: 3RD INFUSION
     Route: 042
     Dates: start: 20080723, end: 20090716
  8. REMICADE [Suspect]
     Dosage: 2ND INFUSION
     Route: 042
     Dates: start: 20080723, end: 20090716
  9. REMICADE [Suspect]
     Indication: CROHN'S DISEASE
     Dosage: 6 INFUSIONS
     Route: 042
     Dates: start: 20080723, end: 20090716

REACTIONS (7)
  - ANGIOEDEMA [None]
  - ANTINUCLEAR ANTIBODY POSITIVE [None]
  - ARTHRALGIA [None]
  - C-REACTIVE PROTEIN INCREASED [None]
  - COMPLEMENT FACTOR C3 DECREASED [None]
  - COMPLEMENT FACTOR C4 DECREASED [None]
  - CROHN'S DISEASE [None]
